FAERS Safety Report 11231211 (Version 1)
Quarter: 2015Q3

REPORT INFORMATION
  Report Type: Spontaneous
  Country: US (occurrence: US)
  Receive Date: 20150701
  Receipt Date: 20150701
  Transmission Date: 20151125
  Serious: No
  Sender: FDA-Public Use
  Company Number: US-ASTRAZENECA-2015SE62054

PATIENT
  Sex: Male

DRUGS (3)
  1. MOVANTIK [Suspect]
     Active Substance: NALOXEGOL OXALATE
     Indication: PELVIC DEFORMITY
     Dosage: AT NIGHT
     Route: 048
     Dates: start: 20150622
  2. LAXATIVE [Concomitant]
     Active Substance: UNSPECIFIED INGREDIENT
  3. RELESTOR [Concomitant]

REACTIONS (4)
  - Dysuria [Unknown]
  - Drug ineffective [Unknown]
  - Pain [Unknown]
  - Constipation [Unknown]
